FAERS Safety Report 25868708 (Version 1)
Quarter: 2025Q4

REPORT INFORMATION
  Report Type: Spontaneous
  Country: AR (occurrence: AR)
  Receive Date: 20251001
  Receipt Date: 20251001
  Transmission Date: 20260117
  Serious: Yes (Other)
  Sender: GILEAD
  Company Number: AR-GILEAD-2025-0730451

PATIENT
  Sex: Male

DRUGS (1)
  1. BIKTARVY [Suspect]
     Active Substance: BICTEGRAVIR SODIUM\EMTRICITABINE\TENOFOVIR ALAFENAMIDE FUMARATE
     Indication: HIV infection
     Dosage: UNK
     Route: 048
     Dates: start: 202109

REACTIONS (9)
  - Suicidal ideation [Unknown]
  - Aggression [Unknown]
  - Nightmare [Unknown]
  - Insomnia [Unknown]
  - Depersonalisation/derealisation disorder [Unknown]
  - Auditory disorder [Unknown]
  - Renal impairment [Unknown]
  - Hepatic function abnormal [Unknown]
  - Gastrointestinal disorder [Unknown]
